FAERS Safety Report 26180670 (Version 1)
Quarter: 2025Q4

REPORT INFORMATION
  Report Type: Spontaneous
  Country: PR (occurrence: PR)
  Receive Date: 20251219
  Receipt Date: 20251219
  Transmission Date: 20260118
  Serious: No
  Sender: ANI
  Company Number: PR-ANIPHARMA-2025-PR-000118

PATIENT
  Age: 63 Year
  Sex: Male
  Weight: 76.2 kg

DRUGS (6)
  1. CORTICOTROPIN [Suspect]
     Active Substance: CORTICOTROPIN
     Indication: Rheumatoid arthritis
     Dosage: 80 U TWICE A WEEK
     Route: 058
     Dates: start: 20251103
  2. VALSARTAN [Concomitant]
     Active Substance: VALSARTAN
     Route: 048
  3. NORVASC [Concomitant]
     Active Substance: AMLODIPINE BESYLATE
     Route: 048
  4. CRESTOR [Concomitant]
     Active Substance: ROSUVASTATIN CALCIUM
     Route: 048
  5. METHOTREXATE SODIUM [Concomitant]
     Active Substance: METHOTREXATE SODIUM
     Route: 048
  6. CIALIS [Concomitant]
     Active Substance: TADALAFIL
     Route: 048

REACTIONS (2)
  - Headache [Unknown]
  - Dizziness [Unknown]
